FAERS Safety Report 9913949 (Version 4)
Quarter: 2014Q1

REPORT INFORMATION
  Report Type: Report from Study
  Country: BE (occurrence: BE)
  Receive Date: 20140220
  Receipt Date: 20140318
  Transmission Date: 20141002
  Serious: Yes (Death, Hospitalization, Other)
  Sender: FDA-Public Use
  Company Number: BE-MPIJNJ-2014JNJ000395

PATIENT
  Sex: 0

DRUGS (8)
  1. VELCADE [Suspect]
     Indication: AMYLOIDOSIS
     Dosage: 2.6 MG OR 7.8MG, UNK
     Route: 058
     Dates: start: 20140117, end: 20140128
  2. DEXAMETHASONE [Suspect]
     Indication: AMYLOIDOSIS
     Dosage: UNK
     Route: 048
     Dates: start: 20140117, end: 20140128
  3. ALDACTONE                          /00006201/ [Concomitant]
     Indication: CARDIAC FAILURE
     Dosage: 40 MG, UNK
     Route: 048
     Dates: start: 20131023, end: 20140208
  4. ACICLOVIR [Concomitant]
     Indication: ANTIVIRAL PROPHYLAXIS
     Dosage: 800 MG, UNK
     Route: 048
     Dates: start: 20131114, end: 20140208
  5. LYSOMUCIL [Concomitant]
     Indication: DYSPNOEA
     Dosage: 1200 MG, UNK
     Route: 048
     Dates: start: 20131206, end: 20140208
  6. OMEPRAZOL                          /00661201/ [Concomitant]
     Indication: PROPHYLAXIS
     Dosage: 40 MG, UNK
     Route: 048
     Dates: start: 20131114, end: 20140208
  7. BURINEX [Concomitant]
     Indication: PROPHYLAXIS
     Dosage: 2 MG, UNK
     Route: 048
     Dates: start: 20140103, end: 20140208
  8. PENTAMIDINE [Concomitant]
     Indication: INFECTION PROPHYLAXIS
     Dosage: UNK
     Dates: start: 20140117, end: 20140208

REACTIONS (6)
  - Hepatorenal syndrome [Fatal]
  - Ascites [Fatal]
  - Renal failure acute [Fatal]
  - Jaundice [Fatal]
  - Amyloidosis [Fatal]
  - General physical health deterioration [Fatal]
